FAERS Safety Report 17823838 (Version 1)
Quarter: 2020Q2

REPORT INFORMATION
  Report Type: Spontaneous
  Country: US (occurrence: US)
  Receive Date: 20200526
  Receipt Date: 20200526
  Transmission Date: 20200714
  Serious: No
  Sender: FDA-Public Use
  Company Number: US-BAYER-2020-091610

PATIENT
  Age: 77 Year
  Sex: Female

DRUGS (7)
  1. NATURES WAY SUPERFOODS TUMERIC [Suspect]
     Active Substance: HERBALS\TURMERIC
     Route: 065
  2. MULTIVITAMIN [ASCORBIC ACID;BIOTIN;CALCIUM PANTOTHENATE;CYANOCOBAL [Concomitant]
  3. FLEXERIL [CEFIXIME] [Suspect]
     Active Substance: CEFIXIME
     Route: 065
  4. CLARITIN LIQUI-GELS [Suspect]
     Active Substance: LORATADINE
     Dosage: 1 DF, QD
     Route: 048
     Dates: start: 20200514
  5. CLARITIN LIQUI-GELS [Suspect]
     Active Substance: LORATADINE
     Dosage: UNK
     Dates: start: 20200520
  6. DIPHENHYDRAMINE HYDROCHLORIDE. [Suspect]
     Active Substance: DIPHENHYDRAMINE HYDROCHLORIDE
     Route: 065
  7. ALEVE [Concomitant]
     Active Substance: NAPROXEN SODIUM

REACTIONS (6)
  - Drug ineffective [Unknown]
  - Vomiting [Recovered/Resolved]
  - Weight decreased [Unknown]
  - Drug effective for unapproved indication [Unknown]
  - Somnolence [Unknown]
  - Rash [Unknown]

NARRATIVE: CASE EVENT DATE: 20200514
